FAERS Safety Report 14034131 (Version 1)
Quarter: 2017Q4

REPORT INFORMATION
  Report Type: Report from Study
  Country: CA (occurrence: CA)
  Receive Date: 20171003
  Receipt Date: 20171003
  Transmission Date: 20180321
  Serious: Yes (Hospitalization, Other)
  Sender: FDA-Public Use
  Company Number: PHHY2014CA129890

PATIENT
  Age: 71 Year
  Sex: Male

DRUGS (8)
  1. TELMISARTAN SANDOZ [Suspect]
     Active Substance: TELMISARTAN
     Indication: HYPERTENSION
     Dosage: 1 DF, QD
     Route: 048
     Dates: start: 2013
  2. TAMSULOSIN SANDOZ [Suspect]
     Active Substance: TAMSULOSIN
     Indication: PROSTATOMEGALY
     Dosage: 1 DF, QD
     Route: 048
     Dates: start: 2012
  3. XOLAIR [Suspect]
     Active Substance: OMALIZUMAB
     Indication: ASTHMA
     Dosage: 375 MG, BIW (Q2W)
     Route: 058
     Dates: start: 20140626
  4. SYMBICORT [Concomitant]
     Active Substance: BUDESONIDE\FORMOTEROL FUMARATE DIHYDRATE
     Indication: ASTHMA
     Dosage: 2 DF, BID
     Route: 055
     Dates: start: 2015
  5. DILTIAZEM SANDOZ [Suspect]
     Active Substance: DILTIAZEM HYDROCHLORIDE
     Indication: HYPERTENSION
     Dosage: 1 DF, QD
     Route: 048
     Dates: start: 2015
  6. VENTOLIN [Concomitant]
     Active Substance: ALBUTEROL SULFATE
     Indication: ASTHMA
     Dosage: 2 DF, QD
     Route: 055
     Dates: start: 2010
  7. SINGULAIR [Concomitant]
     Active Substance: MONTELUKAST SODIUM
     Indication: ASTHMA
     Dosage: 1 DF, UNK
     Route: 048
     Dates: start: 2015
  8. PREDNISONE. [Concomitant]
     Active Substance: PREDNISONE
     Indication: ASTHMA
     Dosage: 1 DF, QD
     Route: 048
     Dates: start: 2015

REACTIONS (4)
  - Chronic obstructive pulmonary disease [Unknown]
  - Dyspnoea [Unknown]
  - Asthma [Unknown]
  - Heart rate irregular [Unknown]

NARRATIVE: CASE EVENT DATE: 201408
